FAERS Safety Report 16693583 (Version 1)
Quarter: 2019Q3

REPORT INFORMATION
  Report Type: Other
  Country: US (occurrence: US)
  Receive Date: 20190812
  Receipt Date: 20190812
  Transmission Date: 20191004
  Serious: No
  Sender: FDA-Public Use
  Company Number: US-AMNEAL PHARMACEUTICALS-2019AMN00132

PATIENT

DRUGS (2)
  1. IBUPROFEN. [Suspect]
     Active Substance: IBUPROFEN
     Indication: PRODUCT USED FOR UNKNOWN INDICATION
     Dosage: UNK UNK, 2X/DAY (AM AND PM)
     Route: 065
     Dates: start: 20181221
  2. IBUPROFEN. [Suspect]
     Active Substance: IBUPROFEN
     Dosage: UNK UNK, 2X/DAY (AM, NOON AND PM)
     Route: 065
     Dates: start: 20181228

REACTIONS (2)
  - Drug ineffective [Unknown]
  - Symptom recurrence [Unknown]
